FAERS Safety Report 5965371-3 (Version None)
Quarter: 2008Q4

REPORT INFORMATION
  Report Type: 
  Country: None (occurrence: None)
  Receive Date: 20081125
  Receipt Date: 20081114
  Transmission Date: 20090506
  Serious: Yes (Other)
  Sender: FDA-Public Use
  Company Number: GB-ASTRAZENECA-2008GB02060

PATIENT
  Age: 65 Year
  Sex: Male

DRUGS (4)
  1. SYMBICORT [Suspect]
     Indication: ASTHMA
     Dosage: 400/12 TWO PUFFS TWICE DAILY
     Route: 055
     Dates: start: 20080301
  2. LEVOTHYROXINE SODIUM [Concomitant]
     Indication: HYPOTHYROIDISM
     Dosage: STARTED OVER 12 MONTHS AGO
     Route: 048
  3. OMEPRAZOLE [Concomitant]
     Indication: GASTROOESOPHAGEAL REFLUX PROPHYLAXIS
     Dates: start: 20080201
  4. VENTOLIN [Concomitant]
     Indication: ASTHMA
     Dosage: 2 PUFFS AS REQUIRED, STARTED OVER 12 MONTHS AGO
     Route: 055

REACTIONS (4)
  - FEELING ABNORMAL [None]
  - HEADACHE [None]
  - OCULAR HYPERAEMIA [None]
  - TREMOR [None]
